FAERS Safety Report 7432490-4 (Version None)
Quarter: 2011Q2

REPORT INFORMATION
  Report Type: 
  Country: None (occurrence: None)
  Receive Date: 20110422
  Receipt Date: 20110408
  Transmission Date: 20111010
  Serious: No
  Sender: FDA-Public Use
  Company Number: US-B.I. PHARMACEUTICALS,INC./RIDGEFIELD-2011-BP-10444BP

PATIENT
  Age: 85 Year
  Sex: Female

DRUGS (8)
  1. LISINOPRIL [Concomitant]
     Dosage: 25 MG
     Route: 048
  2. ZOCOR [Concomitant]
     Dosage: 40 MG
     Route: 048
  3. MULTI-VITAMIN [Concomitant]
     Indication: ROUTINE HEALTH MAINTENANCE
     Route: 048
  4. OSCAL [Concomitant]
     Indication: ROUTINE HEALTH MAINTENANCE
     Route: 048
  5. METOPROLOL [Concomitant]
     Indication: ATRIAL FIBRILLATION
     Dosage: 50 MG
     Route: 048
  6. GLUCOSAMINE [Concomitant]
     Indication: ROUTINE HEALTH MAINTENANCE
     Route: 048
  7. PRADAXA [Suspect]
     Indication: ATRIAL FIBRILLATION
     Dosage: 300 MG
     Route: 048
     Dates: start: 20110301
  8. GABAPENTIN [Concomitant]
     Indication: NEUROPATHY PERIPHERAL
     Dosage: 300 MG
     Route: 048

REACTIONS (4)
  - ARTHRALGIA [None]
  - ASTHENIA [None]
  - RHINORRHOEA [None]
  - PRURITUS [None]
